FAERS Safety Report 7218374-5 (Version None)
Quarter: 2011Q1

REPORT INFORMATION
  Report Type: 
  Country: None (occurrence: None)
  Receive Date: 20110110
  Receipt Date: 20110106
  Transmission Date: 20110831
  Serious: Yes (Other)
  Sender: FDA-Public Use
  Company Number: DE-PFIZER INC-2011003461

PATIENT
  Age: 30 Year
  Sex: Male
  Weight: 70 kg

DRUGS (4)
  1. BENEFIX [Suspect]
     Dosage: D3: 1000IU AND 1000IU
  2. BENEFIX [Suspect]
     Dosage: D2: 2000IU AND 1000IU
  3. BENEFIX [Suspect]
     Indication: FACTOR IX DEFICIENCY
     Dosage: BEFORE SURGERY 1500 IU 2X PER WEEK
  4. BENEFIX [Suspect]
     Dosage: DAY OF SURGERY, D1: INITIAL BOLUS DOSE 6000IU, 12 H LATER 2500IU

REACTIONS (1)
  - MUSCLE HAEMORRHAGE [None]
